FAERS Safety Report 7755703-8 (Version None)
Quarter: 2011Q3

REPORT INFORMATION
  Report Type: 
  Country: None (occurrence: None)
  Receive Date: 20110916
  Receipt Date: 20110906
  Transmission Date: 20111222
  Serious: Yes (Hospitalization, Other)
  Sender: FDA-Public Use
  Company Number: PHHO2011US15597

PATIENT
  Sex: Male

DRUGS (3)
  1. PROLEUKIN [Suspect]
     Indication: METASTATIC MALIGNANT MELANOMA
     Dosage: 71.6 MIU, Q8H
     Route: 042
     Dates: start: 20110722, end: 20110724
  2. CYTOXAN [Concomitant]
  3. FLUDARABINE PHOSPHATE [Concomitant]

REACTIONS (6)
  - LEFT VENTRICULAR DYSFUNCTION [None]
  - MENTAL STATUS CHANGES [None]
  - HYPOTENSION [None]
  - TACHYPNOEA [None]
  - SOMNOLENCE [None]
  - CONVULSION [None]
